FAERS Safety Report 7866665-7 (Version None)
Quarter: 2011Q4

REPORT INFORMATION
  Report Type: 
  Country: None (occurrence: None)
  Receive Date: 20111028
  Receipt Date: 20110722
  Transmission Date: 20120403
  Serious: No
  Sender: FDA-Public Use
  Company Number: US-GLAXOSMITHKLINE-A0938013A

PATIENT
  Age: 77 Year
  Sex: Male

DRUGS (6)
  1. LORTAB [Concomitant]
  2. ADVAIR DISKUS 100/50 [Suspect]
     Indication: PRODUCT USED FOR UNKNOWN INDICATION
     Dosage: 1PUFF TWICE PER DAY
     Route: 055
  3. ZANTAC [Concomitant]
  4. FOLIC ACID [Concomitant]
  5. SPIRIVA [Concomitant]
  6. METHOTREXATE [Concomitant]

REACTIONS (2)
  - CONDITION AGGRAVATED [None]
  - PRODUCT QUALITY ISSUE [None]
